FAERS Safety Report 11808684 (Version 1)
Quarter: 2015Q4

REPORT INFORMATION
  Report Type: Spontaneous
  Country: US (occurrence: US)
  Receive Date: 20151207
  Receipt Date: 20151207
  Transmission Date: 20160305
  Serious: Yes (Other)
  Sender: FDA-Public Use
  Company Number: US-ROCHE-1556376

PATIENT
  Age: 67 Year
  Sex: Female
  Weight: 69.92 kg

DRUGS (13)
  1. PROTONIX (UNITED STATES) [Concomitant]
  2. TRAMADOL. [Concomitant]
     Active Substance: TRAMADOL
     Dosage: TAKE 1 TABLET DAILY AS DIRECTED BY MOUTH
     Route: 065
  3. AMLODIPINE [Concomitant]
     Active Substance: AMLODIPINE BESYLATE
     Dosage: TAKE 1 BY MOUTH EVERY DAY
     Route: 065
  4. LOSARTAN. [Concomitant]
     Active Substance: LOSARTAN
     Dosage: TAKE MOUTH
     Route: 065
  5. ALBUTEROL INHALATION SOLUTION [Concomitant]
     Active Substance: ALBUTEROL
  6. DICLOFENAC POTASSIUM. [Concomitant]
     Active Substance: DICLOFENAC POTASSIUM
     Dosage: TAKE 1  BY MOUTH
     Route: 065
  7. METHYL PREDNISOLONE SODIUM SUCCINATE [Concomitant]
     Active Substance: METHYLPREDNISOLONE SODIUM SUCCINATE
  8. PROAIR (ALBUTEROL) [Concomitant]
     Dosage: AS DIRECTEDE AS NEEDED 2 PUFFS EVERY 6 HOURS AS  NEEDED
     Route: 065
  9. ACTEMRA [Suspect]
     Active Substance: TOCILIZUMAB
     Indication: RHEUMATOID ARTHRITIS
     Dosage: 1 EVERY OTHER WEEK?DATE OF MOST RECENT DOSE PRIOR TO EVENT 10/MAR/2015
     Route: 058
     Dates: start: 20150107, end: 20150311
  10. ACTEMRA [Suspect]
     Active Substance: TOCILIZUMAB
     Route: 058
     Dates: start: 20150310
  11. GABAPENTIN. [Concomitant]
     Active Substance: GABAPENTIN
     Dosage: TAKE MOUTH AS DIRECTED FOR DAYS AT BED TIME
     Route: 065
  12. VITAMIN D3 [Concomitant]
     Active Substance: CHOLECALCIFEROL
     Dosage: 1000 UNITS TABLETS TAKE 1 BY MOUTH EVERY 24 HOURS
     Route: 065
  13. PROTONIX [Concomitant]
     Active Substance: PANTOPRAZOLE SODIUM
     Dosage: TAKE 1 BY MOUTH EVERY DAY
     Route: 065

REACTIONS (6)
  - Cellulitis [Unknown]
  - Rash [Unknown]
  - Injection site erythema [Recovered/Resolved]
  - Injection site pruritus [Recovered/Resolved]
  - Hypersensitivity [Unknown]
  - Injection site swelling [Recovered/Resolved]

NARRATIVE: CASE EVENT DATE: 20150227
